FAERS Safety Report 19381851 (Version 1)
Quarter: 2021Q2

REPORT INFORMATION
  Report Type: Spontaneous
  Country: US (occurrence: US)
  Receive Date: 20210606
  Receipt Date: 20210606
  Transmission Date: 20210717
  Serious: Yes (Other)
  Sender: FDA-Public Use
  Company Number: None

PATIENT
  Age: 49 Year
  Sex: Female
  Weight: 65.25 kg

DRUGS (1)
  1. NIZORAL A?D [Suspect]
     Active Substance: KETOCONAZOLE
     Indication: ANTIFUNGAL TREATMENT
     Route: 061
     Dates: start: 20210505, end: 20210512

REACTIONS (5)
  - Eczema [None]
  - Dermatitis contact [None]
  - Eosinophil count increased [None]
  - Drug hypersensitivity [None]
  - Perivascular dermatitis [None]

NARRATIVE: CASE EVENT DATE: 20210508
